FAERS Safety Report 4944824-0 (Version None)
Quarter: 2006Q1

REPORT INFORMATION
  Report Type: 
  Country: None (occurrence: None)
  Receive Date: 20060315
  Receipt Date: 20050901
  Transmission Date: 20060701
  Serious: Yes (Hospitalization)
  Sender: FDA-Public Use
  Company Number: US-MERCK-0509USA00458

PATIENT
  Age: 75 Year
  Sex: Female
  Weight: 60 kg

DRUGS (5)
  1. VIOXX [Suspect]
     Indication: OSTEOARTHRITIS
     Route: 048
     Dates: start: 20000921, end: 20030226
  2. PREMARIN [Concomitant]
     Route: 065
  3. DIPYRIDAMOLE [Concomitant]
     Route: 065
  4. HYDROCODONE BITARTRATE [Concomitant]
     Route: 065
  5. VIOXX [Suspect]
     Route: 048
     Dates: start: 20000921, end: 20030226

REACTIONS (9)
  - ANAEMIA [None]
  - BACK PAIN [None]
  - CATARACT [None]
  - CEREBRAL INFARCTION [None]
  - DISLOCATION OF VERTEBRA [None]
  - FIBROMYALGIA [None]
  - HIATUS HERNIA [None]
  - SPINAL DEFORMITY [None]
  - SPONDYLOLISTHESIS [None]
